FAERS Safety Report 9900677 (Version 1)
Quarter: 2014Q1

REPORT INFORMATION
  Report Type: Report from Study
  Country: GB (occurrence: GB)
  Receive Date: 20140217
  Receipt Date: 20140217
  Transmission Date: 20141002
  Serious: Yes (Hospitalization)
  Sender: FDA-Public Use
  Company Number: GB-ROCHE-1349407

PATIENT
  Age: 64 Year
  Sex: Female

DRUGS (9)
  1. RITUXIMAB [Suspect]
     Indication: B-CELL LYMPHOMA
     Route: 065
  2. VINCRISTINE [Suspect]
     Indication: B-CELL LYMPHOMA
     Route: 065
  3. CYCLOPHOSPHAMIDE [Suspect]
     Indication: B-CELL LYMPHOMA
     Route: 065
  4. PREDNISONE [Suspect]
     Indication: B-CELL LYMPHOMA
     Route: 065
  5. ACICLOVIR [Concomitant]
     Route: 048
     Dates: start: 20120515
  6. OMEPRAZOLE [Concomitant]
     Route: 048
     Dates: start: 20120515
  7. ALLOPURINOL [Concomitant]
     Route: 048
     Dates: start: 20120515
  8. CELIPROLOL [Concomitant]
     Indication: HYPERTENSION
     Route: 048
  9. LACTULOSE [Concomitant]
     Route: 048
     Dates: start: 20120517

REACTIONS (1)
  - Constipation [Not Recovered/Not Resolved]
